FAERS Safety Report 16651380 (Version 1)
Quarter: 2019Q3

REPORT INFORMATION
  Report Type: Spontaneous
  Country: CO (occurrence: CO)
  Receive Date: 20190731
  Receipt Date: 20190731
  Transmission Date: 20191004
  Serious: Yes (Life-Threatening)
  Sender: FDA-Public Use
  Company Number: CO-ROCHE-2367272

PATIENT
  Age: 56 Year
  Sex: Female

DRUGS (8)
  1. CARBOPLATIN. [Suspect]
     Active Substance: CARBOPLATIN
     Indication: OVARIAN CANCER
     Dosage: 1H IN 500 ML OF 0.9% SSN
     Route: 042
     Dates: start: 20190517, end: 20190517
  2. PACLITAXEL. [Concomitant]
     Active Substance: PACLITAXEL
     Indication: CHEMOTHERAPY
     Dosage: 3H IN 500 ML OF 0.9% SSN
     Route: 042
     Dates: start: 20190517, end: 20190517
  3. DEXAMETHASONE. [Concomitant]
     Active Substance: DEXAMETHASONE
     Indication: PREMEDICATION
     Dosage: 15 MIN IN 100 ML  SSN 0.9%
     Route: 042
     Dates: start: 20190517, end: 20190517
  4. ONDASETRON [ONDANSETRON] [Concomitant]
     Indication: PREMEDICATION
     Dosage: 15 MIN IN 100 ML  SSN 0.9%
     Route: 042
     Dates: start: 20190517, end: 20190517
  5. RANITIDINE. [Concomitant]
     Active Substance: RANITIDINE
     Dosage: 15 MIN IN 10ML SSN 0.9% BOLUS
     Route: 042
     Dates: start: 20190517, end: 20190517
  6. AVASTIN [Suspect]
     Active Substance: BEVACIZUMAB
     Indication: OVARIAN CANCER
     Dosage: 1H IN 500 ML DE  SSN 0.9%
     Route: 042
     Dates: start: 20190517, end: 20190517
  7. RANITIDINE. [Concomitant]
     Active Substance: RANITIDINE
     Indication: PREMEDICATION
     Dosage: 15 MIN IN 100 ML  SSN 0.9%
     Route: 042
     Dates: start: 20190517, end: 20190517
  8. PREDNISONE. [Concomitant]
     Active Substance: PREDNISONE
     Dosage: BEFORE CHEMOTHERAPY
     Route: 048
     Dates: start: 20190517, end: 20190517

REACTIONS (9)
  - Erythema [Recovered/Resolved]
  - Dyspnoea [Recovered/Resolved]
  - Hypersensitivity [Recovered/Resolved]
  - Anxiety [Recovered/Resolved]
  - Rash [Recovered/Resolved]
  - Blood pressure increased [Recovered/Resolved]
  - Abdominal pain [Recovered/Resolved]
  - Chest pain [Recovered/Resolved]
  - Tachycardia [Recovered/Resolved]

NARRATIVE: CASE EVENT DATE: 20190517
